FAERS Safety Report 14957251 (Version 1)
Quarter: 2018Q2

REPORT INFORMATION
  Report Type: Spontaneous
  Country: US (occurrence: US)
  Receive Date: 20180531
  Receipt Date: 20180531
  Transmission Date: 20180711
  Serious: Yes (Death, Life-Threatening, Hospitalization, Other)
  Sender: FDA-Public Use
  Company Number: US-PFIZER INC-2017358334

PATIENT
  Sex: Female

DRUGS (1)
  1. AMIODARONE HCL [Suspect]
     Active Substance: AMIODARONE HYDROCHLORIDE
     Indication: ATRIAL FIBRILLATION
     Dosage: 200 MG, UNK
     Route: 048
     Dates: start: 201211

REACTIONS (7)
  - Hypothyroidism [Unknown]
  - Depression [Unknown]
  - Pneumonia [Unknown]
  - Respiratory failure [Fatal]
  - Sepsis [Unknown]
  - Pulmonary fibrosis [Fatal]
  - Infection [Unknown]

NARRATIVE: CASE EVENT DATE: 201408
